FAERS Safety Report 19567393 (Version 1)
Quarter: 2021Q3

REPORT INFORMATION
  Report Type: Spontaneous
  Country: US (occurrence: US)
  Receive Date: 20210715
  Receipt Date: 20210715
  Transmission Date: 20211014
  Serious: No
  Sender: FDA-Public Use
  Company Number: US-GLENMARK PHARMACEUTICALS-2020GMK050779

PATIENT

DRUGS (2)
  1. FLUOROURACIL. [Concomitant]
     Active Substance: FLUOROURACIL
     Indication: PRECANCEROUS CONDITION
     Dosage: UNK
     Route: 061
  2. CALCIPOTRIENE CREAM 0.005% [Suspect]
     Active Substance: CALCIPOTRIENE
     Indication: PRECANCEROUS CONDITION
     Dosage: UNK
     Route: 061

REACTIONS (2)
  - Headache [Unknown]
  - Product use in unapproved indication [Unknown]
